FAERS Safety Report 22541053 (Version 1)
Quarter: 2023Q2

REPORT INFORMATION
  Report Type: Spontaneous
  Country: US (occurrence: None)
  Receive Date: 20230608
  Receipt Date: 20230608
  Transmission Date: 20230722
  Serious: Yes (Death)
  Sender: FDA-Public Use
  Company Number: None

PATIENT
  Age: 75 Year
  Sex: Female

DRUGS (4)
  1. PROTAMINE [Suspect]
     Active Substance: PROTAMINE
  2. ASPIRIN [Suspect]
     Active Substance: ASPIRIN
  3. CILOSTAZOL [Suspect]
     Active Substance: CILOSTAZOL
  4. HEPARIN [Suspect]
     Active Substance: HEPARIN SODIUM

REACTIONS (10)
  - Pulmonary arterial hypertension [None]
  - Acute kidney injury [None]
  - Distributive shock [None]
  - Pneumonia [None]
  - Superficial vein thrombosis [None]
  - Melaena [None]
  - Haemoglobin decreased [None]
  - Acute myocardial infarction [None]
  - Respiratory distress [None]
  - Pulmonary oedema [None]

NARRATIVE: CASE EVENT DATE: 20230308
